FAERS Safety Report 17399068 (Version 1)
Quarter: 2020Q1

REPORT INFORMATION
  Report Type: Spontaneous
  Country: GB (occurrence: GB)
  Receive Date: 20200210
  Receipt Date: 20200210
  Transmission Date: 20200409
  Serious: Yes (Hospitalization)
  Sender: FDA-Public Use
  Company Number: GB-ABBVIE-19K-167-3205336-00

PATIENT
  Age: 0 Year
  Sex: Female
  Weight: 4 kg

DRUGS (5)
  1. SYNAGIS [Suspect]
     Active Substance: PALIVIZUMAB
     Route: 030
     Dates: start: 20200116
  2. DALIVIT [Concomitant]
     Indication: PRODUCT USED FOR UNKNOWN INDICATION
  3. SYNAGIS [Suspect]
     Active Substance: PALIVIZUMAB
     Indication: PRODUCT USED FOR UNKNOWN INDICATION
     Route: 030
     Dates: start: 20191106, end: 20191106
  4. SYTRON [Concomitant]
     Indication: PRODUCT USED FOR UNKNOWN INDICATION
  5. GAVISCON [Concomitant]
     Active Substance: ALUMINUM HYDROXIDE\MAGNESIUM CARBONATE
     Indication: PRODUCT USED FOR UNKNOWN INDICATION

REACTIONS (2)
  - Respiratory syncytial virus bronchiolitis [Recovered/Resolved]
  - Respiratory syncytial virus infection [Unknown]

NARRATIVE: CASE EVENT DATE: 2019
